FAERS Safety Report 11965426 (Version 1)
Quarter: 2016Q1

REPORT INFORMATION
  Report Type: Spontaneous
  Country: US (occurrence: None)
  Receive Date: 20160125
  Receipt Date: 20160125
  Transmission Date: 20160526
  Serious: Yes (Life-Threatening)
  Sender: FDA-Public Use
  Company Number: None

PATIENT
  Age: 78 Year
  Sex: Female
  Weight: 131.54 kg

DRUGS (1)
  1. EUCERIN DAILY PROTECTION FACE [Suspect]
     Active Substance: ENSULIZOLE\OCTINOXATE\OCTISALATE\TITANIUM DIOXIDE\ZINC OXIDE
     Indication: DRY SKIN PROPHYLAXIS
     Route: 061

REACTIONS (5)
  - Urticaria [None]
  - Erythema [None]
  - Dyspnoea [None]
  - Dysphagia [None]
  - Swelling [None]

NARRATIVE: CASE EVENT DATE: 20160119
